FAERS Safety Report 24364570 (Version 1)
Quarter: 2024Q3

REPORT INFORMATION
  Report Type: Spontaneous
  Country: DE (occurrence: DE)
  Receive Date: 20240926
  Receipt Date: 20240926
  Transmission Date: 20241016
  Serious: Yes (Other)
  Sender: HETERO
  Company Number: DE-NOVOPROD-1281339

PATIENT
  Sex: Male

DRUGS (2)
  1. SILDENAFIL [Interacting]
     Active Substance: SILDENAFIL
     Indication: Erectile dysfunction
     Dosage: UNK
     Route: 065
  2. OZEMPIC [Interacting]
     Active Substance: SEMAGLUTIDE
     Indication: Weight decreased
     Dosage: UNK
     Route: 065

REACTIONS (6)
  - Condition aggravated [Unknown]
  - Drug interaction [Unknown]
  - Lack of concomitant drug effect [Unknown]
  - Erectile dysfunction [Unknown]
  - Visual impairment [Unknown]
  - Off label use [Unknown]
